FAERS Safety Report 19836022 (Version 3)
Quarter: 2021Q4

REPORT INFORMATION
  Report Type: Spontaneous
  Country: US (occurrence: US)
  Receive Date: 20210916
  Receipt Date: 20211105
  Transmission Date: 20220303
  Serious: Yes (Other)
  Sender: FDA-Public Use
  Company Number: US-UNITED THERAPEUTICS-UNT-2021-017722

PATIENT
  Sex: Female
  Weight: 78.912 kg

DRUGS (7)
  1. REMODULIN [Suspect]
     Active Substance: TREPROSTINIL
     Indication: Pulmonary arterial hypertension
     Dosage: UNK, CONTINUING
     Route: 041
     Dates: start: 20210804
  2. REMODULIN [Suspect]
     Active Substance: TREPROSTINIL
     Dosage: 0.00625 ?G/KG, CONTINUING
     Route: 041
     Dates: start: 2021
  3. REMODULIN [Suspect]
     Active Substance: TREPROSTINIL
     Dosage: 0.0225 ?G/KG, CONTINUING
     Route: 041
     Dates: start: 2021
  4. CHLORAPREP [Suspect]
     Active Substance: CHLORHEXIDINE GLUCONATE\ISOPROPYL ALCOHOL
     Indication: Product used for unknown indication
     Dosage: UNK
     Route: 065
  5. POLYURETHANE [Suspect]
     Active Substance: POLYURETHANE
     Indication: Product used for unknown indication
     Dosage: UNK
     Route: 065
  6. TADALAFIL [Concomitant]
     Active Substance: TADALAFIL
     Indication: Product used for unknown indication
     Dosage: UNK
     Route: 065
  7. ZOLOFT [Concomitant]
     Active Substance: SERTRALINE HYDROCHLORIDE
     Indication: Product used for unknown indication
     Dosage: UNK
     Route: 065

REACTIONS (9)
  - Device dislocation [Unknown]
  - Injection site pain [Unknown]
  - Injection site pruritus [Unknown]
  - Injection site irritation [Unknown]
  - Injection site haemorrhage [Unknown]
  - Dermatitis contact [Unknown]
  - Injection site urticaria [Unknown]
  - Injection site rash [Unknown]
  - Stress [Unknown]

NARRATIVE: CASE EVENT DATE: 20210101
